FAERS Safety Report 8005967-0 (Version None)
Quarter: 2011Q4

REPORT INFORMATION
  Report Type: 
  Country: None (occurrence: None)
  Receive Date: 20111223
  Receipt Date: 20111214
  Transmission Date: 20120403
  Serious: Yes (Other)
  Sender: FDA-Public Use
  Company Number: US-ASTRAZENECA-2011SE75843

PATIENT
  Age: 63 Year
  Sex: Female

DRUGS (1)
  1. SYMBICORT [Suspect]
     Route: 055

REACTIONS (3)
  - PITUITARY-DEPENDENT CUSHING'S SYNDROME [None]
  - PITUITARY TUMOUR [None]
  - CHRONIC OBSTRUCTIVE PULMONARY DISEASE [None]
